FAERS Safety Report 7974037-X (Version None)
Quarter: 2011Q4

REPORT INFORMATION
  Report Type: 
  Country: None (occurrence: None)
  Receive Date: 20111213
  Receipt Date: 20111123
  Transmission Date: 20120403
  Serious: Yes (Other)
  Sender: FDA-Public Use
  Company Number: FR-GLAXOSMITHKLINE-B0766153A

PATIENT
  Age: 82 Year
  Sex: Male

DRUGS (2)
  1. CLOBETASOL [Suspect]
     Indication: PEMPHIGOID
     Route: 061
  2. PREDNISOLONE [Concomitant]
     Indication: PEMPHIGOID
     Dosage: 60MG PER DAY
     Route: 048

REACTIONS (2)
  - SKIN ATROPHY [None]
  - OSTEOPENIA [None]
